FAERS Safety Report 6818266-7 (Version None)
Quarter: 2010Q3

REPORT INFORMATION
  Report Type: 
  Country: None (occurrence: None)
  Receive Date: 20100706
  Receipt Date: 20071023
  Transmission Date: 20110219
  Serious: No
  Sender: FDA-Public Use
  Company Number: US-PFIZER INC-2007059125

PATIENT
  Sex: Male
  Weight: 100 kg

DRUGS (4)
  1. ZITHROMAX [Suspect]
     Indication: TONSILLITIS
     Dates: start: 20070707, end: 20070711
  2. PREVACID [Concomitant]
  3. TYLENOL [Concomitant]
  4. IBUPROFEN [Concomitant]

REACTIONS (1)
  - DRUG INEFFECTIVE [None]
